FAERS Safety Report 23603530 (Version 1)
Quarter: 2024Q1

REPORT INFORMATION
  Report Type: Spontaneous
  Country: NL (occurrence: NL)
  Receive Date: 20240307
  Receipt Date: 20240307
  Transmission Date: 20240409
  Serious: Yes (Other)
  Sender: FDA-Public Use
  Company Number: None

PATIENT
  Age: 66 Year
  Sex: Male
  Weight: 79 kg

DRUGS (4)
  1. LENALIDOMIDE [Suspect]
     Active Substance: LENALIDOMIDE
     Indication: Plasma cell myeloma
     Dosage: BRAND NAME NOT SPECIFIED
     Route: 065
     Dates: start: 20230915
  2. FLUDRACE [Concomitant]
     Indication: Product used for unknown indication
     Dosage: FLUDROCORTISON
     Route: 065
  3. DARATUMUMAB [Concomitant]
     Active Substance: DARATUMUMAB
     Indication: Product used for unknown indication
     Dosage: 1 MG/MG (MILLIGRAM PER MILLIGRAM)??INJECTION/INFUSE / BRAND NAME NOT SPECIFIED
     Route: 065
  4. DEXAMETHASON ACETATE [Concomitant]
     Indication: Product used for unknown indication
     Dosage: DEXAMETHASON ACETAAT / BRAND NAME NOT SPECIFIED.

REACTIONS (1)
  - Polyneuropathy [Not Recovered/Not Resolved]
